FAERS Safety Report 24682155 (Version 1)
Quarter: 2024Q4

REPORT INFORMATION
  Report Type: Spontaneous
  Country: CH (occurrence: CH)
  Receive Date: 20241130
  Receipt Date: 20241130
  Transmission Date: 20250114
  Serious: Yes (Hospitalization, Other)
  Sender: ALEXION PHARMACEUTICALS
  Company Number: None

PATIENT
  Age: 188 Day
  Weight: 6.2 kg

DRUGS (4)
  1. NIRSEVIMAB [Suspect]
     Active Substance: NIRSEVIMAB
     Indication: Immunisation
     Dosage: 50 MG, TOTAL
     Route: 065
  2. NIRSEVIMAB [Suspect]
     Active Substance: NIRSEVIMAB
     Dosage: 50 MG, TOTAL
  3. NIRSEVIMAB [Suspect]
     Active Substance: NIRSEVIMAB
     Dosage: 50 MG, TOTAL
     Route: 065
  4. NIRSEVIMAB [Suspect]
     Active Substance: NIRSEVIMAB
     Dosage: 50 MG, TOTAL

REACTIONS (1)
  - Intussusception [Recovered/Resolved]
